FAERS Safety Report 4997496-3 (Version None)
Quarter: 2006Q2

REPORT INFORMATION
  Report Type: 
  Country: None (occurrence: None)
  Receive Date: 20060509
  Receipt Date: 20060504
  Transmission Date: 20061013
  Serious: Yes (Hospitalization)
  Sender: FDA-Public Use
  Company Number: US-MERCK-0605USA01077

PATIENT
  Age: 68 Year
  Sex: Male
  Weight: 78 kg

DRUGS (1)
  1. VIOXX [Suspect]
     Indication: ARTHRITIS
     Route: 048
     Dates: start: 20040401, end: 20040901

REACTIONS (2)
  - BACK DISORDER [None]
  - MYOCARDIAL INFARCTION [None]
